FAERS Safety Report 4283362-8 (Version None)
Quarter: 2004Q1

REPORT INFORMATION
  Report Type: 
  Country: None (occurrence: None)
  Receive Date: 20040129
  Receipt Date: 20030805
  Transmission Date: 20041129
  Serious: Yes (Other)
  Sender: FDA-Public Use
  Company Number: 2003033398

PATIENT

DRUGS (1)
  1. CEFOPERAZONE/SULBACTAM (CEFOPERAZONE, SULBACTAM) [Suspect]
     Indication: INFECTION
     Dosage: 1 GRAM, INTRAVENOUS
     Route: 042

REACTIONS (3)
  - FEELING ABNORMAL [None]
  - INFUSION RELATED REACTION [None]
  - SHOCK [None]
